FAERS Safety Report 21924028 (Version 2)
Quarter: 2023Q2

REPORT INFORMATION
  Report Type: Spontaneous
  Country: JP (occurrence: JP)
  Receive Date: 20230130
  Receipt Date: 20230501
  Transmission Date: 20230722
  Serious: Yes (Other)
  Sender: FDA-Public Use
  Company Number: JP-TAKEDA-2023TJP001120

PATIENT
  Age: 66 Year
  Sex: Female

DRUGS (1)
  1. AGRYLIN [Suspect]
     Active Substance: ANAGRELIDE HYDROCHLORIDE
     Indication: Essential thrombocythaemia
     Dosage: UNK
     Route: 048
     Dates: start: 2022

REACTIONS (2)
  - Nephrogenic anaemia [Unknown]
  - Anaemia [Unknown]
